FAERS Safety Report 9702814 (Version 3)
Quarter: 2017Q2

REPORT INFORMATION
  Report Type: Spontaneous
  Country: FR (occurrence: FR)
  Receive Date: 20131121
  Receipt Date: 20170623
  Transmission Date: 20170830
  Serious: Yes (Life-Threatening, Hospitalization, Other)
  Sender: FDA-Public Use
  Company Number: FR-VIIV HEALTHCARE LIMITED-B0546637A

PATIENT
  Age: 51 Year
  Sex: Female

DRUGS (4)
  1. VIRAMUNE [Suspect]
     Active Substance: NEVIRAPINE
     Indication: HIV INFECTION
     Dosage: UNK UNK, Z
     Route: 048
     Dates: start: 20080910, end: 20081007
  2. VIRAMUNE [Suspect]
     Active Substance: NEVIRAPINE
     Dosage: UNK
  3. COMBIVIR [Suspect]
     Active Substance: LAMIVUDINE\ZIDOVUDINE
     Indication: HIV INFECTION
     Route: 048
     Dates: start: 200201, end: 20081007
  4. SUSTIVA [Suspect]
     Active Substance: EFAVIRENZ
     Indication: HIV INFECTION
     Route: 065
     Dates: start: 2002

REACTIONS (27)
  - Mucous membrane disorder [Recovered/Resolved]
  - Dermatitis bullous [Recovered/Resolved with Sequelae]
  - Dysphagia [Unknown]
  - Peripheral vascular disorder [Unknown]
  - Alopecia [Recovered/Resolved]
  - Toxic epidermal necrolysis [Recovered/Resolved with Sequelae]
  - Onycholysis [Unknown]
  - Lacrimation increased [Recovered/Resolved]
  - Dry eye [Recovered/Resolved]
  - Photophobia [Recovered/Resolved]
  - Orthosis user [Unknown]
  - Pyrexia [Unknown]
  - Cough [Unknown]
  - Conjunctival disorder [Recovered/Resolved]
  - Pigmentation disorder [Not Recovered/Not Resolved]
  - Anxiety [Unknown]
  - Insomnia [Unknown]
  - Mental disorder [Unknown]
  - Cheilitis [Unknown]
  - Dry mouth [Unknown]
  - Depression [Unknown]
  - Peripheral swelling [Unknown]
  - Hand deformity [Unknown]
  - Abnormal sensation in eye [Recovered/Resolved]
  - Nail dystrophy [Unknown]
  - Asthenia [Unknown]
  - Arthralgia [Unknown]

NARRATIVE: CASE EVENT DATE: 200809
